FAERS Safety Report 10670933 (Version 5)
Quarter: 2015Q1

REPORT INFORMATION
  Report Type: Report from Study
  Country: PR (occurrence: PR)
  Receive Date: 20141223
  Receipt Date: 20150330
  Transmission Date: 20150720
  Serious: Yes (Hospitalization, Other)
  Sender: FDA-Public Use
  Company Number: PR-BAYER-2014-110903

PATIENT
  Age: 69 Year
  Sex: Female

DRUGS (4)
  1. ADEMPAS [Suspect]
     Active Substance: RIOCIGUAT
     Indication: PULMONARY ARTERIAL HYPERTENSION
     Dosage: 1.5 MG, TID
     Route: 048
  2. ADEMPAS [Suspect]
     Active Substance: RIOCIGUAT
     Indication: PULMONARY ARTERIAL HYPERTENSION
     Dosage: ONE TID (6 MG)
     Route: 048
     Dates: start: 201411, end: 201412
  3. ADEMPAS [Suspect]
     Active Substance: RIOCIGUAT
     Indication: PULMONARY ARTERIAL HYPERTENSION
     Dosage: 0.5 MG, TID
     Route: 048
     Dates: start: 20141111, end: 20141209
  4. ADEMPAS [Suspect]
     Active Substance: RIOCIGUAT
     Indication: PULMONARY ARTERIAL HYPERTENSION
     Dosage: 0.5 MG, TID
     Route: 048
     Dates: start: 20140716

REACTIONS (12)
  - Off label use [None]
  - Inappropriate schedule of drug administration [None]
  - Blood pressure diastolic decreased [None]
  - Pneumonia [None]
  - Cardiac murmur [None]
  - Somnolence [None]
  - Aortic calcification [None]
  - Asthenia [None]
  - Hypotension [None]
  - Asthenia [None]
  - Breast operation [None]
  - Dizziness [None]

NARRATIVE: CASE EVENT DATE: 20140722
